FAERS Safety Report 5910332-3 (Version None)
Quarter: 2008Q4

REPORT INFORMATION
  Report Type: 
  Country: None (occurrence: None)
  Receive Date: 20081007
  Receipt Date: 20080609
  Transmission Date: 20090506
  Serious: No
  Sender: FDA-Public Use
  Company Number: US-ASTRAZENECA-2007UW27511

PATIENT
  Age: 68 Year
  Sex: Female
  Weight: 99.8 kg

DRUGS (11)
  1. ARIMIDEX [Suspect]
     Indication: PROPHYLAXIS
     Route: 048
  2. DEMAXIDE [Concomitant]
  3. RELAFEN [Concomitant]
  4. OMEPRAZOLE [Concomitant]
     Route: 048
  5. ZETIA [Concomitant]
  6. POTASSIUM CHLORIDE [Concomitant]
  7. VICODIN [Concomitant]
  8. MULTI-VITAMIN [Concomitant]
  9. GLUCOSAMINE [Concomitant]
  10. CHONDROITIN [Concomitant]
  11. CALCIUM D [Concomitant]

REACTIONS (2)
  - MUSCULOSKELETAL STIFFNESS [None]
  - PAIN IN EXTREMITY [None]
